FAERS Safety Report 20851577 (Version 2)
Quarter: 2022Q2

REPORT INFORMATION
  Report Type: Spontaneous
  Country: JP (occurrence: JP)
  Receive Date: 20220520
  Receipt Date: 20220605
  Transmission Date: 20220721
  Serious: Yes (Hospitalization)
  Sender: FDA-Public Use
  Company Number: JP-KYOWAKIRIN-2022AKK007002

PATIENT
  Age: 9 Decade
  Sex: Male

DRUGS (2)
  1. DARBEPOETIN ALFA [Suspect]
     Active Substance: DARBEPOETIN ALFA
     Indication: Product used for unknown indication
     Dosage: 40 MICROGRAM, Q4WK
     Route: 065
  2. VADADUSTAT [Concomitant]
     Active Substance: VADADUSTAT
     Dosage: UNK
     Route: 048

REACTIONS (1)
  - COVID-19 [Unknown]
